FAERS Safety Report 17028641 (Version 1)
Quarter: 2019Q4

REPORT INFORMATION
  Report Type: Spontaneous
  Country: JP (occurrence: JP)
  Receive Date: 20191113
  Receipt Date: 20191113
  Transmission Date: 20200122
  Serious: Yes (Hospitalization, Other)
  Sender: FDA-Public Use
  Company Number: JP-009507513-1704JPN000696J

PATIENT
  Age: 7 Decade
  Sex: Male

DRUGS (7)
  1. JANUVIA [Suspect]
     Active Substance: SITAGLIPTIN PHOSPHATE
     Dosage: 50 MILLIGRAM, QD
     Route: 048
     Dates: end: 201702
  2. CONTOMIN [Concomitant]
     Active Substance: CHLORPROMAZINE
     Dosage: 50 MG, UNK
     Route: 048
  3. DIQUAS [Concomitant]
     Active Substance: DIQUAFOSOL TETRASODIUM
     Dosage: UNK
     Route: 047
  4. WARFARIN [Concomitant]
     Active Substance: WARFARIN
     Dosage: 1 MG, UNK
     Route: 048
  5. PATANOL [Concomitant]
     Active Substance: OLOPATADINE HYDROCHLORIDE
     Dosage: UNK
     Route: 047
  6. SUMATRIPTAN. [Concomitant]
     Active Substance: SUMATRIPTAN
     Dosage: 50 MG, UNK
     Route: 048
  7. JANUVIA [Suspect]
     Active Substance: SITAGLIPTIN PHOSPHATE
     Indication: TYPE 2 DIABETES MELLITUS
     Dosage: 50 MILLIGRAM, QD
     Route: 048
     Dates: start: 201312

REACTIONS (2)
  - Blood glucose increased [Unknown]
  - Pemphigoid [Recovering/Resolving]

NARRATIVE: CASE EVENT DATE: 201702
